FAERS Safety Report 13160424 (Version 2)
Quarter: 2017Q1

REPORT INFORMATION
  Report Type: Report from Study
  Country: JP (occurrence: JP)
  Receive Date: 20170127
  Receipt Date: 20170215
  Transmission Date: 20170428
  Serious: Yes (Hospitalization)
  Sender: FDA-Public Use
  Company Number: JP-AMGEN-JPNSP2017013710

PATIENT
  Age: 54 Year
  Sex: Female

DRUGS (5)
  1. CINACALCET HCL [Suspect]
     Active Substance: CINACALCET HYDROCHLORIDE
     Indication: HYPERPARATHYROIDISM SECONDARY
     Dosage: 25 MG, QD
     Route: 048
     Dates: start: 20160125, end: 20160214
  2. CINACALCET HCL [Suspect]
     Active Substance: CINACALCET HYDROCHLORIDE
     Dosage: 64.3 MG, QD
     Route: 048
     Dates: start: 20160711
  3. CINACALCET HCL [Suspect]
     Active Substance: CINACALCET HYDROCHLORIDE
     Dosage: 50 MG, QD
     Route: 048
     Dates: start: 20160215, end: 20160522
  4. CINACALCET HCL [Suspect]
     Active Substance: CINACALCET HYDROCHLORIDE
     Dosage: 75 MG, QD
     Route: 048
     Dates: start: 20160523, end: 20160710
  5. CINACALCET HCL [Suspect]
     Active Substance: CINACALCET HYDROCHLORIDE
     Dosage: 64.3 MG, QD
     Route: 048
     Dates: start: 20160711, end: 20160717

REACTIONS (8)
  - Enterocolitis [Recovered/Resolved]
  - Abdominal discomfort [Recovered/Resolved]
  - Abdominal distension [Recovered/Resolved]
  - Periodontal disease [Recovered/Resolved]
  - Periodontitis [Recovered/Resolved]
  - Diarrhoea [Recovered/Resolved]
  - Contusion [Recovered/Resolved]
  - Dental caries [Recovered/Resolved]

NARRATIVE: CASE EVENT DATE: 20160219
